FAERS Safety Report 7555911-5 (Version None)
Quarter: 2011Q2

REPORT INFORMATION
  Report Type: 
  Country: None (occurrence: None)
  Receive Date: 20110618
  Receipt Date: 20110128
  Transmission Date: 20111010
  Serious: Yes (Hospitalization)
  Sender: FDA-Public Use
  Company Number: US-BAYER-201031328NA

PATIENT
  Age: 23 Year
  Sex: Female
  Weight: 61.224 kg

DRUGS (10)
  1. YAZ [Suspect]
     Indication: PREMENSTRUAL SYNDROME
     Dosage: UNK
     Dates: start: 20090101
  2. YASMIN [Suspect]
     Indication: ACNE
  3. PHENTERMINE [Concomitant]
  4. LEVAQUIN [Concomitant]
  5. DE-CHLOR DM [Concomitant]
  6. YAZ [Suspect]
     Indication: CONTRACEPTION
     Dosage: UNK
     Dates: start: 20080701
  7. DROSPIRENONE AND ETHINYL ESTRADIOL [Concomitant]
     Indication: PREMENSTRUAL SYNDROME
  8. YAZ [Suspect]
     Indication: ACNE
  9. YASMIN [Suspect]
     Indication: PREMENSTRUAL SYNDROME
  10. DROSPIRENONE AND ETHINYL ESTRADIOL [Concomitant]
     Indication: ACNE
     Dosage: UNK
     Dates: start: 20091210, end: 20100209

REACTIONS (4)
  - CHOLECYSTITIS CHRONIC [None]
  - BILIARY DYSKINESIA [None]
  - DYSPEPSIA [None]
  - GALLBLADDER DISORDER [None]
